FAERS Safety Report 15518082 (Version 1)
Quarter: 2018Q4

REPORT INFORMATION
  Report Type: Spontaneous
  Country: TR (occurrence: TR)
  Receive Date: 20181017
  Receipt Date: 20181017
  Transmission Date: 20190205
  Serious: Yes (Other)
  Sender: FDA-Public Use
  Company Number: TR-ALEMBIC PHARMACUETICALS LIMITED-2018SCAL000765

PATIENT

DRUGS (1)
  1. MODAFINIL. [Suspect]
     Active Substance: MODAFINIL
     Indication: ATTENTION DEFICIT/HYPERACTIVITY DISORDER
     Dosage: 5000 MG, QD

REACTIONS (7)
  - Irritability [Unknown]
  - Drug dependence [Unknown]
  - Fatigue [Unknown]
  - Abnormal dreams [Unknown]
  - Overdose [Unknown]
  - Anxiety [Unknown]
  - Sleep disorder [Unknown]
